FAERS Safety Report 8060610-X (Version None)
Quarter: 2012Q1

REPORT INFORMATION
  Report Type: 
  Country: None (occurrence: None)
  Receive Date: 20120120
  Receipt Date: 20120118
  Transmission Date: 20120608
  Serious: Yes (Death, Hospitalization)
  Sender: FDA-Public Use
  Company Number: AU-B.I. PHARMACEUTICALS,INC./RIDGEFIELD-2011-AU-01870AU

PATIENT
  Sex: Male

DRUGS (31)
  1. NITROLINGUAL PUMPSPRAY [Concomitant]
  2. NORMACOL PLUS [Concomitant]
     Dosage: GRANULES - 62%/8%/25%
  3. LERCANIDIPINE [Concomitant]
     Dosage: 10 MG
  4. ACCUPRIL [Concomitant]
     Dosage: 10 MG
  5. ATROPT [Concomitant]
     Dosage: 1%
  6. PRILOSEC [Concomitant]
     Dosage: 40 MG
  7. MAGMIN [Concomitant]
     Dosage: 1000 MG
  8. MAXOLON [Concomitant]
     Indication: NAUSEA
     Dosage: 30 MG
  9. ARISTOCORT [Concomitant]
     Dosage: 0.02%
  10. CHOLECALCIFEROL [Concomitant]
     Dosage: 3000 U
  11. CLARATYNE [Concomitant]
     Dosage: 10 MG
  12. FERRO-F-TAB [Concomitant]
     Dosage: 310MG/350MCG
  13. ACETAMINOPHEN W/ CODEINE [Concomitant]
     Dosage: 500MG/30MG
  14. PANADOL OSTEO [Concomitant]
  15. GLYCEROL 2.6% [Concomitant]
  16. MOVIPREP [Concomitant]
     Dosage: 13.125G/350.7MG/46.6MG/178.5MG
  17. TAZAC [Concomitant]
     Dosage: 300 MG
  18. PRADAXA [Suspect]
     Indication: ATRIAL FIBRILLATION
     Dosage: 220 MG
     Dates: start: 20110602
  19. CARTIA XT [Concomitant]
  20. TIMOLOL MALEATE [Concomitant]
  21. METAMUCIL-2 [Concomitant]
     Dosage: 5.8 G
  22. OXYCONTIN [Concomitant]
     Indication: PAIN
     Dosage: 20 MG
  23. PARAFFIN [Concomitant]
  24. PERIACTIN [Concomitant]
     Dosage: 4 MG
  25. PREDNEFRIN FORTE [Concomitant]
     Dosage: 1%/0.12%
  26. FINASTA [Concomitant]
     Dosage: 5 MG
  27. IMOVANE [Concomitant]
     Dosage: 7.5 MG
  28. TRANSDERM-NITRO [Concomitant]
     Dosage: 50 MG
  29. XALATAN [Concomitant]
     Dosage: 50MCG/ML
  30. ALLEVYN THIN [Concomitant]
     Dosage: 10CM X 10CM DRESSING
  31. SIMVASTATIN [Concomitant]
     Dosage: 10 MG

REACTIONS (7)
  - SEPSIS [None]
  - FEMORAL NECK FRACTURE [None]
  - PNEUMONIA [None]
  - RENAL IMPAIRMENT [None]
  - CARDIAC DISORDER [None]
  - FALL [None]
  - OEDEMA PERIPHERAL [None]
